FAERS Safety Report 8121835-8 (Version None)
Quarter: 2012Q1

REPORT INFORMATION
  Report Type: 
  Country: None (occurrence: None)
  Receive Date: 20120208
  Receipt Date: 20120125
  Transmission Date: 20120608
  Serious: Yes (Hospitalization)
  Sender: FDA-Public Use
  Company Number: AU-PFIZER INC-2012032131

PATIENT
  Age: 36 Year
  Sex: Female

DRUGS (1)
  1. MS CONTIN [Suspect]
     Dosage: 100MG, DAILY
     Route: 048

REACTIONS (1)
  - NEUROGENIC BLADDER [None]
